FAERS Safety Report 12711077 (Version 2)
Quarter: 2016Q4

REPORT INFORMATION
  Report Type: Spontaneous
  Country: US (occurrence: US)
  Receive Date: 20160902
  Receipt Date: 20161031
  Transmission Date: 20170207
  Serious: No
  Sender: FDA-Public Use
  Company Number: US-JNJFOC-20160811060

PATIENT
  Age: 44 Year
  Sex: Female
  Weight: 115.67 kg

DRUGS (9)
  1. INVOKANA [Suspect]
     Active Substance: CANAGLIFLOZIN
     Indication: TYPE 2 DIABETES MELLITUS
     Route: 048
     Dates: start: 20151009, end: 20160701
  2. GLIPIZIDE. [Concomitant]
     Active Substance: GLIPIZIDE
     Dosage: TABLETS TO BE TAKEN AT NIGHT
     Route: 048
     Dates: start: 20160516
  3. VISTARIL [Concomitant]
     Active Substance: HYDROXYZINE PAMOATE
     Indication: ANXIETY
     Dosage: AS NECESSARY
     Route: 048
     Dates: start: 20160425
  4. PRAVASTATIN. [Concomitant]
     Active Substance: PRAVASTATIN
     Dosage: AT NIGHT
     Route: 048
     Dates: start: 20160301
  5. BENZACLIN [Concomitant]
     Active Substance: BENZOYL PEROXIDE\CLINDAMYCIN PHOSPHATE
     Dosage: 1 APPLICATION, TWICE DAILY
     Route: 061
     Dates: start: 20151219
  6. VISTARIL [Concomitant]
     Active Substance: HYDROXYZINE PAMOATE
     Indication: INSOMNIA
     Dosage: AS NECESSARY
     Route: 048
     Dates: start: 20160425
  7. METFORMIN [Concomitant]
     Active Substance: METFORMIN HYDROCHLORIDE
     Dosage: TABLET 1/2 IN MORNING, 1 IN THE EVENING AND 1 AT NIGHT
     Route: 048
     Dates: start: 20160308
  8. EFLORNITHINE [Concomitant]
     Active Substance: EFLORNITHINE
     Dosage: 1 APPLICATION, TWICE DAILY ON AFFECTED AREA
     Route: 061
     Dates: start: 20151130
  9. MELATONIN [Concomitant]
     Active Substance: MELATONIN
     Route: 048
     Dates: start: 20151119

REACTIONS (2)
  - Genital ulceration [Recovered/Resolved]
  - Fungal infection [Recovered/Resolved]

NARRATIVE: CASE EVENT DATE: 201606
